FAERS Safety Report 16174847 (Version 1)
Quarter: 2019Q2

REPORT INFORMATION
  Report Type: Spontaneous
  Country: GB (occurrence: GB)
  Receive Date: 20190409
  Receipt Date: 20190409
  Transmission Date: 20190711
  Serious: Yes (Other)
  Sender: FDA-Public Use
  Company Number: GB-AMREGENT-20190620

PATIENT
  Age: 65 Year
  Sex: Female
  Weight: 40 kg

DRUGS (5)
  1. BIOLECTRA (MAGNESIUM) [Suspect]
     Active Substance: MAGNESIUM
     Dosage: 300 MG, ONCE IN A WHILE
     Route: 065
     Dates: start: 20181009
  2. ZINC. [Suspect]
     Active Substance: ZINC
     Dosage: ONCE IN A WHILE
     Route: 065
     Dates: start: 20181009
  3. SIDERAL [ASCORBIC ACID\CYANOCOBALAMIN\FERRIC PYROPHOSPHATE] [Suspect]
     Active Substance: ASCORBIC ACID\CYANOCOBALAMIN\FERRIC PYROPHOSPHATE
     Dosage: 24 MG (12 MG,2 IN 1 D)
     Route: 065
     Dates: start: 20181009, end: 20190109
  4. FERINJECT [Suspect]
     Active Substance: FERRIC CARBOXYMALTOSE
     Dosage: 10 ML, 4 IN 1 M FOR 3 M
     Route: 040
     Dates: start: 20181009, end: 20181227
  5. CALCIMED (CALCIUM ASCORBATE) [Suspect]
     Active Substance: CALCIUM ASCORBATE
     Dosage: 600 MG, ONCE IN A WHILE
     Route: 065
     Dates: start: 20181009

REACTIONS (1)
  - Autoimmune disorder [Unknown]

NARRATIVE: CASE EVENT DATE: 2018
